FAERS Safety Report 8860045 (Version 1)
Quarter: 2012Q4

REPORT INFORMATION
  Report Type: 
  Country: US (occurrence: US)
  Receive Date: 20121025
  Receipt Date: 20121025
  Transmission Date: 20130627
  Serious: No
  Sender: FDA-Public Use
  Company Number: US-TEVA-357796USA

PATIENT
  Sex: Female

DRUGS (1)
  1. METHOTREXATE [Suspect]

REACTIONS (2)
  - Erythema [Unknown]
  - Papule [Unknown]
